FAERS Safety Report 4493018-4 (Version None)
Quarter: 2004Q4

REPORT INFORMATION
  Report Type: 
  Country: None (occurrence: None)
  Receive Date: 20041020
  Receipt Date: 20040827
  Transmission Date: 20050328
  Serious: No
  Sender: FDA-Public Use
  Company Number: 601522

PATIENT
  Age: 48 Year
  Sex: Female
  Weight: 39 kg

DRUGS (7)
  1. ARALAST [Suspect]
     Indication: ALPHA-1 ANTI-TRYPSIN DEFICIENCY
     Dosage: 2340 MG; QW; INTRAVENOUS
     Route: 042
     Dates: start: 20040601, end: 20040601
  2. ARALAST [Suspect]
     Indication: CONGENITAL EMPHYSEMA
     Dosage: 2340 MG; QW; INTRAVENOUS
     Route: 042
     Dates: start: 20040601, end: 20040601
  3. ALBUTEROL [Concomitant]
  4. ADVAIR [Concomitant]
  5. THEOPHYLLINE [Concomitant]
  6. EFFEXOR [Concomitant]
  7. CLONAZEPAM [Concomitant]

REACTIONS (3)
  - CONDITION AGGRAVATED [None]
  - COUGH [None]
  - PHARMACEUTICAL PRODUCT COMPLAINT [None]
